FAERS Safety Report 7276668-1 (Version None)
Quarter: 2011Q1

REPORT INFORMATION
  Report Type: 
  Country: None (occurrence: None)
  Receive Date: 20110204
  Receipt Date: 20110202
  Transmission Date: 20110831
  Serious: Yes (Other)
  Sender: FDA-Public Use
  Company Number: US-GENENTECH-297052

PATIENT
  Sex: Female
  Weight: 88.889 kg

DRUGS (36)
  1. SODIUM CHLORIDE 0.9% [Concomitant]
     Indication: HYPERSENSITIVITY
     Dosage: UNK
  2. OYSTER SHELL CALCIUM [Concomitant]
     Indication: PRODUCT USED FOR UNKNOWN INDICATION
     Dosage: 500 MG, QD
     Route: 048
  3. NEXIUM [Concomitant]
     Indication: GASTROOESOPHAGEAL REFLUX DISEASE
     Dosage: 40 MG, BID
     Route: 048
     Dates: start: 20080101
  4. MUCINEX [Concomitant]
     Indication: NASOPHARYNGITIS
     Dosage: UNK
     Route: 048
  5. PATADAY [Concomitant]
     Indication: HYPERSENSITIVITY
     Dosage: UNK GTT, PRN
     Dates: start: 20070101
  6. TYLENOL-500 [Concomitant]
     Indication: PAIN
     Dosage: 500 MG, PRN
     Route: 048
  7. ZOLOFT [Concomitant]
     Indication: DEPRESSION
     Dosage: 100 MG, QD
     Route: 048
     Dates: start: 20071027
  8. IMMUNOTHERAPY (CAT HAIR, DUSTMITE MIX, AND MO [Concomitant]
     Indication: HYPERSENSITIVITY
  9. XOPENEX HFA [Concomitant]
     Indication: ASTHMA
     Dosage: 2 UNK, PRN
     Route: 055
     Dates: start: 20090101
  10. LORATADINE [Concomitant]
     Indication: HYPERSENSITIVITY
     Dosage: 10 MG, QD
     Route: 048
  11. SINGULAIR [Concomitant]
     Indication: HYPERSENSITIVITY
     Dosage: 10 MG, QD
     Route: 048
     Dates: start: 20050101
  12. AMITRIPTYLINE HCL [Concomitant]
     Indication: HYPERSENSITIVITY
     Dosage: 10 MG, QHS
     Route: 048
     Dates: start: 20050101
  13. TYLENOL-500 [Concomitant]
     Indication: HEADACHE
  14. VICODIN [Concomitant]
     Indication: PRODUCT USED FOR UNKNOWN INDICATION
     Dosage: UNK MG, UNK
  15. NASACORT AQ [Concomitant]
     Indication: RHINITIS ALLERGIC
     Dosage: 2 PUFF, BID
     Route: 055
     Dates: start: 20090101
  16. AFRIN [Concomitant]
     Indication: PRODUCT USED FOR UNKNOWN INDICATION
     Dosage: UNK
  17. SPIRIVA [Concomitant]
     Indication: ASTHMA
     Dosage: 1 UNK, QD
     Route: 055
     Dates: start: 20040101
  18. IBUPROFEN [Concomitant]
     Indication: PAIN
     Dosage: 800 MG, PRN
     Route: 048
  19. EPIPEN [Concomitant]
     Indication: ANAPHYLACTIC REACTION
     Dosage: 0.3 MG, UNK
  20. XOPHENEX [Concomitant]
     Indication: ASTHMA
     Dosage: 1.25 MG, PRN
     Route: 055
     Dates: start: 20080101
  21. BACTROBAN NASAL [Concomitant]
     Indication: PRODUCT USED FOR UNKNOWN INDICATION
     Dosage: UNK
  22. TOBRAMYCIN [Concomitant]
     Indication: SINUSITIS
     Dosage: UNK
     Route: 055
     Dates: start: 20090101
  23. XOLAIR [Suspect]
     Indication: ASTHMA
     Dosage: 300 MG, Q4W
     Route: 058
     Dates: start: 20060922, end: 20100112
  24. ALVESCO [Concomitant]
     Indication: ASTHMA
     Dosage: 160 A?G, QD
     Route: 055
     Dates: start: 20080101
  25. PREDNISONE [Concomitant]
     Indication: PRODUCT USED FOR UNKNOWN INDICATION
     Dosage: UNK
  26. SINGULAIR [Concomitant]
     Indication: ASTHMA
  27. VANCOMYCIN [Concomitant]
     Indication: SINUSITIS
     Dosage: UNK
     Route: 055
     Dates: start: 20090101
  28. LORAZEPAM [Concomitant]
     Indication: ANXIETY
     Dosage: 0.5 MG, PRN
     Route: 048
  29. PATANASE NASAL SPRAY [Concomitant]
     Indication: PRODUCT USED FOR UNKNOWN INDICATION
     Dosage: 2 PUFF, BID
  30. REGLAN [Concomitant]
     Indication: GASTROOESOPHAGEAL REFLUX DISEASE
     Dosage: 10 MG, QHS
     Route: 048
     Dates: start: 20060101
  31. XYLOCAINE [Concomitant]
     Indication: PRODUCT USED FOR UNKNOWN INDICATION
     Dosage: 40 MG/ML, PRN
  32. ZEGERID [Concomitant]
     Indication: GASTROOESOPHAGEAL REFLUX DISEASE
     Dosage: 40 MG, QHS
     Route: 048
     Dates: start: 20080101
  33. IMITREX [Concomitant]
     Indication: MIGRAINE
     Dosage: 100 MG, PRN
     Route: 048
  34. TRIAMCINOLON OINTMENT [Concomitant]
     Indication: PRODUCT USED FOR UNKNOWN INDICATION
     Dosage: 0.5 %, PRN
  35. HI-CAL PLUS VITAMIN D [Concomitant]
     Indication: VITAMIN D DEFICIENCY
     Dosage: 1 TABLET, QD
     Route: 048
  36. AZITHROMYCIN [Concomitant]
     Indication: SINUSITIS
     Dosage: 500 MG, QD
     Route: 048
     Dates: start: 20101005, end: 20101011

REACTIONS (4)
  - COUGH [None]
  - ABDOMINAL PAIN [None]
  - ASTHMA [None]
  - HYPERSENSITIVITY [None]
